FAERS Safety Report 6130490-8 (Version None)
Quarter: 2009Q1

REPORT INFORMATION
  Report Type: 
  Country: None (occurrence: None)
  Receive Date: 20090323
  Receipt Date: 20090317
  Transmission Date: 20090719
  Serious: No
  Sender: FDA-Public Use
  Company Number: TPA2009A00387

PATIENT
  Age: 57 Year
  Sex: Male
  Weight: 77.1115 kg

DRUGS (10)
  1. ACTOPLUS MET [Suspect]
     Indication: TYPE 2 DIABETES MELLITUS
     Dosage: 15/500 MG, 2 IN 1 D, PER ORAL, 15/500 MG, 2 IN 1 D, PER ORAL
     Route: 048
     Dates: start: 20070501, end: 20090309
  2. ACTOPLUS MET [Suspect]
     Indication: TYPE 2 DIABETES MELLITUS
     Dosage: 15/500 MG, 2 IN 1 D, PER ORAL, 15/500 MG, 2 IN 1 D, PER ORAL
     Route: 048
     Dates: start: 20090301, end: 20090317
  3. ACTOS [Suspect]
     Indication: TYPE 2 DIABETES MELLITUS
     Dosage: PER ORAL
     Route: 048
     Dates: start: 20090301, end: 20090301
  4. PLAVIX [Concomitant]
  5. SYNTHROID [Concomitant]
  6. METOPROLOL TARTRATE [Concomitant]
  7. ACIPHEX [Concomitant]
  8. SIMVASTATIN [Concomitant]
  9. ASPIRIN [Concomitant]
  10. POLYGLYCOL (ALL OTHER THERAPEUTIC PRODUCTS) [Concomitant]

REACTIONS (3)
  - FEELING COLD [None]
  - GASTRIC DISORDER [None]
  - NEUROPATHY PERIPHERAL [None]
